FAERS Safety Report 20612331 (Version 1)
Quarter: 2022Q1

REPORT INFORMATION
  Report Type: Spontaneous
  Country: AU (occurrence: AU)
  Receive Date: 20220318
  Receipt Date: 20220318
  Transmission Date: 20220423
  Serious: Yes (Other)
  Sender: FDA-Public Use
  Company Number: AU-009507513-2203AUS004706

PATIENT
  Sex: Male

DRUGS (2)
  1. POSACONAZOLE [Suspect]
     Active Substance: POSACONAZOLE
     Indication: Pneumonia
  2. PROGRAF [Suspect]
     Active Substance: TACROLIMUS
     Indication: Prophylaxis against transplant rejection
     Dosage: 0.5 MILLIGRAM, QD

REACTIONS (4)
  - Liver transplant rejection [Unknown]
  - Immunosuppressant drug level increased [Not Recovered/Not Resolved]
  - Labelled drug-drug interaction issue [Unknown]
  - Product use issue [Unknown]
